FAERS Safety Report 23329355 (Version 1)
Quarter: 2023Q4

REPORT INFORMATION
  Report Type: Spontaneous
  Country: US (occurrence: US)
  Receive Date: 20231222
  Receipt Date: 20231222
  Transmission Date: 20240110
  Serious: No
  Sender: FDA-Public Use
  Company Number: US-AUROBINDO-AUR-APL-2023-055245

PATIENT
  Age: 42 Year
  Sex: Male
  Weight: 104.3 kg

DRUGS (1)
  1. AMOXICILLIN [Suspect]
     Active Substance: AMOXICILLIN
     Indication: Ear infection
     Dosage: 2 DOSAGE FORM, ONCE A DAY
     Route: 065
     Dates: start: 20220209

REACTIONS (5)
  - Neuralgia [Not Recovered/Not Resolved]
  - Muscle contractions involuntary [Not Recovered/Not Resolved]
  - Idiopathic environmental intolerance [Not Recovered/Not Resolved]
  - Illness [Unknown]
  - Heavy metal increased [Not Recovered/Not Resolved]

NARRATIVE: CASE EVENT DATE: 20220212
